FAERS Safety Report 5985212-8 (Version None)
Quarter: 2008Q4

REPORT INFORMATION
  Report Type: 
  Country: None (occurrence: None)
  Receive Date: 20081203
  Receipt Date: 20081119
  Transmission Date: 20090506
  Serious: Yes (Other)
  Sender: FDA-Public Use
  Company Number: KV200800336

PATIENT
  Age: 58 Year
  Sex: Female
  Weight: 93 kg

DRUGS (11)
  1. MORPHINE SULFATE [Suspect]
     Indication: BACK PAIN
     Dosage: 15 MG UORAL
     Route: 048
     Dates: start: 20080101, end: 20080101
  2. ALBUTEROL /00139501/ (SALBUTAMOL) INHALER [Concomitant]
  3. ADVAIR (FLUTICASONE PROPIONATE, SALMETEROL XINAFOATE) INHALER [Concomitant]
  4. SIMVASTATIN [Concomitant]
  5. LEXAPRO [Concomitant]
  6. ENALAPRIL MALEATE [Concomitant]
  7. TEGRETOL [Concomitant]
  8. METHOCARBAMOL [Concomitant]
  9. FUROSEMIDE [Concomitant]
  10. METFORMIN HCL [Concomitant]
  11. METOPROLOL TARTRATE [Concomitant]

REACTIONS (4)
  - OVERDOSE [None]
  - OXYGEN SATURATION DECREASED [None]
  - PRODUCT QUALITY ISSUE [None]
  - VOMITING [None]
